FAERS Safety Report 11468940 (Version 6)
Quarter: 2016Q1

REPORT INFORMATION
  Report Type: Spontaneous
  Country: US (occurrence: US)
  Receive Date: 20150908
  Receipt Date: 20160304
  Transmission Date: 20160525
  Serious: Yes (Death, Hospitalization, Other)
  Sender: FDA-Public Use
  Company Number: US-GLAXOSMITHKLINE-US2015GSK100900

PATIENT
  Age: 41 Year
  Sex: Male

DRUGS (6)
  1. FLOLAN [Suspect]
     Active Substance: EPOPROSTENOL SODIUM
     Dosage: 68 NG/KG/MIN CONTINUOUSLY
     Dates: start: 20150331
  2. COUMADIN [Concomitant]
     Active Substance: WARFARIN SODIUM
  3. FLOLAN [Suspect]
     Active Substance: EPOPROSTENOL SODIUM
     Indication: PULMONARY ARTERIAL HYPERTENSION
     Dosage: 60 NG/KG/MIN, CO
     Route: 042
     Dates: start: 20150331
  4. FLOLAN [Suspect]
     Active Substance: EPOPROSTENOL SODIUM
     Dosage: 68 NG/KG/MIN
     Dates: start: 20150331
  5. FLOLAN [Suspect]
     Active Substance: EPOPROSTENOL SODIUM
     Dosage: 60 DF, CO (60 NG/KG/MIN)
     Route: 042
     Dates: start: 20150331
  6. FLOLAN [Suspect]
     Active Substance: EPOPROSTENOL SODIUM
     Dosage: 63 NG/KG/MIN

REACTIONS (5)
  - Epistaxis [Unknown]
  - Complication associated with device [Unknown]
  - Device alarm issue [Unknown]
  - Death [Fatal]
  - Emergency care examination [Unknown]

NARRATIVE: CASE EVENT DATE: 20150710
